FAERS Safety Report 4286193-8 (Version None)
Quarter: 2004Q1

REPORT INFORMATION
  Report Type: 
  Country: None (occurrence: None)
  Receive Date: 20040115
  Receipt Date: 20030422
  Transmission Date: 20041129
  Serious: Yes (Other)
  Sender: FDA-Public Use
  Company Number: 2003157189US

PATIENT
  Age: 48 Year
  Sex: Male

DRUGS (1)
  1. ROGAINE [Suspect]
     Indication: ALOPECIA
     Dosage: 1 MG, QD, TOPICAL; 1MG, BID, TOPICAL
     Route: 061
     Dates: start: 20021201

REACTIONS (5)
  - ANAEMIA [None]
  - FOLATE DEFICIENCY [None]
  - HYPOAESTHESIA [None]
  - VITAMIN B12 DECREASED [None]
  - VITAMIN B6 DECREASED [None]
